FAERS Safety Report 7684734 (Version 2)
Quarter: 2019Q2

REPORT INFORMATION
  Report Type: Report from Study
  Country: CO (occurrence: CO)
  Receive Date: 20101129
  Receipt Date: 20190401
  Transmission Date: 20190711
  Serious: Yes (Death, Hospitalization)
  Sender: FDA-Public Use
  Company Number: CO-ROCHE-728326

PATIENT
  Age: 50 Year
  Sex: Male

DRUGS (2)
  1. XELODA [Suspect]
     Active Substance: CAPECITABINE
     Indication: COLON CANCER
  2. XELODA [Suspect]
     Active Substance: CAPECITABINE
     Indication: GASTRIC CANCER
     Dosage: FREQUENCY: QD
     Route: 048
     Dates: start: 20100516, end: 201010

REACTIONS (8)
  - Fatigue [Unknown]
  - Abdominal pain [Not Recovered/Not Resolved]
  - Abdominal pain upper [Unknown]
  - Disease progression [Fatal]
  - Ill-defined disorder [Unknown]
  - Nausea [Not Recovered/Not Resolved]
  - Insomnia [Unknown]
  - Cardiac disorder [Unknown]

NARRATIVE: CASE EVENT DATE: 20100910
